FAERS Safety Report 23078616 (Version 1)
Quarter: 2023Q4

REPORT INFORMATION
  Report Type: Spontaneous
  Country: US (occurrence: None)
  Receive Date: 20231017
  Receipt Date: 20231017
  Transmission Date: 20240110
  Serious: Yes (Other)
  Sender: FDA-Public Use
  Company Number: None

PATIENT
  Age: 71 Year
  Sex: Male
  Weight: 87.75 kg

DRUGS (16)
  1. DILAUDID [Suspect]
     Active Substance: HYDROMORPHONE HYDROCHLORIDE
     Indication: Product used for unknown indication
     Dosage: OTHER QUANTITY : 1 DRIP;?OTHER FREQUENCY : AS NEEDED;?
     Route: 042
     Dates: start: 20230427, end: 20230427
  2. FLEXERIL [Suspect]
     Active Substance: CYCLOBENZAPRINE HYDROCHLORIDE
     Indication: Product used for unknown indication
     Dosage: OTHER QUANTITY : 1 TABLET(S);?FREQUENCY : AS NEEDED;?
     Route: 048
     Dates: end: 20230428
  3. HEPARIN [Suspect]
     Active Substance: HEPARIN SODIUM
  4. alopurinal [Concomitant]
  5. FOLIC ACID [Concomitant]
     Active Substance: FOLIC ACID
  6. simivestin [Concomitant]
  7. BENAZEPRIL [Concomitant]
     Active Substance: BENAZEPRIL HYDROCHLORIDE
  8. oil of oregano [Concomitant]
  9. K2MK7 [Concomitant]
  10. apple cider capsule [Concomitant]
  11. glucose care [Concomitant]
  12. gymnema [Concomitant]
  13. ASPIRIN [Concomitant]
     Active Substance: ASPIRIN
  14. Psyllium Husk Capsule [Concomitant]
  15. BERBERINE [Concomitant]
     Active Substance: BERBERINE
  16. super omega 3-6-9 [Concomitant]

REACTIONS (4)
  - Coma [None]
  - Physical examination abnormal [None]
  - Aneurysm ruptured [None]
  - Infusion related reaction [None]

NARRATIVE: CASE EVENT DATE: 20230427
